FAERS Safety Report 15022269 (Version 1)
Quarter: 2018Q2

REPORT INFORMATION
  Report Type: Spontaneous
  Country: FR (occurrence: FR)
  Receive Date: 20180618
  Receipt Date: 20180618
  Transmission Date: 20180711
  Serious: Yes (Other)
  Sender: FDA-Public Use
  Company Number: FR-JNJFOC-20180620951

PATIENT
  Sex: Male

DRUGS (7)
  1. TRAMADOL HYDROCHLORIDE. [Suspect]
     Active Substance: TRAMADOL HYDROCHLORIDE
     Indication: BACK PAIN
     Route: 065
  2. SKENAN [Suspect]
     Active Substance: MORPHINE SULFATE
     Indication: BACK PAIN
     Route: 065
  3. SKENAN [Suspect]
     Active Substance: MORPHINE SULFATE
     Indication: BACK PAIN
     Route: 065
  4. SKENAN [Suspect]
     Active Substance: MORPHINE SULFATE
     Indication: BACK PAIN
     Route: 065
  5. ACTISKENAN [Suspect]
     Active Substance: MORPHINE SULFATE
     Indication: BACK PAIN
     Route: 065
  6. SKENAN [Suspect]
     Active Substance: MORPHINE SULFATE
     Indication: BACK PAIN
     Route: 065
  7. PRAZEPAM [Suspect]
     Active Substance: PRAZEPAM
     Indication: MUSCLE RELAXANT THERAPY
     Route: 065

REACTIONS (4)
  - Drug dependence [Unknown]
  - Drug abuse [Unknown]
  - Intentional product use issue [Unknown]
  - Feeling abnormal [Unknown]
